FAERS Safety Report 9762139 (Version 1)
Quarter: 2013Q4

REPORT INFORMATION
  Report Type: Spontaneous
  Country: US (occurrence: US)
  Receive Date: 20131216
  Receipt Date: 20131216
  Transmission Date: 20140711
  Serious: No
  Sender: FDA-Public Use
  Company Number: US-BIOGENIDEC-2013BI103968

PATIENT
  Age: 60 Year
  Sex: Female

DRUGS (9)
  1. TECFIDERA [Suspect]
     Indication: MULTIPLE SCLEROSIS
     Route: 048
     Dates: start: 201309
  2. TECFIDERA [Suspect]
     Indication: MULTIPLE SCLEROSIS
     Route: 048
     Dates: start: 20130916
  3. ADVIL [Concomitant]
  4. ALEVE [Concomitant]
  5. ASPIRIN EC [Concomitant]
  6. BACLOFEN [Concomitant]
  7. GABAPENTIN [Concomitant]
  8. LAMOTRIGINE [Concomitant]
  9. NORTRIPTYLINE HCL [Concomitant]

REACTIONS (4)
  - Poor quality sleep [Unknown]
  - Nausea [Recovered/Resolved]
  - Abdominal pain upper [Recovered/Resolved]
  - Abdominal pain [Unknown]
